FAERS Safety Report 9549993 (Version 1)
Quarter: 2013Q3

REPORT INFORMATION
  Report Type: Spontaneous
  Country: US (occurrence: US)
  Receive Date: 20130924
  Receipt Date: 20130924
  Transmission Date: 20140515
  Serious: Yes (Other)
  Sender: FDA-Public Use
  Company Number: US-GLAXOSMITHKLINE-A1042097A

PATIENT
  Age: 22 Year
  Sex: Female

DRUGS (3)
  1. LAMICTAL [Suspect]
     Indication: CONVULSION
     Route: 065
     Dates: start: 201305
  2. FOLIC ACID [Concomitant]
  3. BIRTH CONTROL [Concomitant]

REACTIONS (1)
  - Grand mal convulsion [Not Recovered/Not Resolved]
